FAERS Safety Report 9185562 (Version 1)
Quarter: 2013Q1

REPORT INFORMATION
  Report Type: Spontaneous
  Country: US (occurrence: None)
  Receive Date: 20130325
  Receipt Date: 20130325
  Transmission Date: 20140127
  Serious: Yes (Death)
  Sender: FDA-Public Use
  Company Number: None

PATIENT
  Age: 31 Year
  Sex: Male
  Weight: 151 kg

DRUGS (28)
  1. FENTANYL [Suspect]
     Indication: ANALGESIC THERAPY
     Route: 042
     Dates: start: 20130126, end: 20130131
  2. MIDAZOLAM [Suspect]
     Indication: ANALGESIC THERAPY
     Route: 042
     Dates: start: 20130130, end: 20130131
  3. APAP [Concomitant]
  4. CHLORHEXIDINE [Concomitant]
  5. CISATRACURIUM DRIP [Concomitant]
  6. DIPHENHYDRAMINE [Concomitant]
  7. DOCUSATE [Concomitant]
  8. ENOXAPARIN [Concomitant]
  9. FAMOTIDINE [Concomitant]
  10. FENTANYL DRIP [Concomitant]
  11. FUROSEMIDE [Concomitant]
  12. HYDROCORTISONE [Concomitant]
  13. IBUPROFEN [Concomitant]
  14. INSULIN ASPART SLIDING SCALE [Concomitant]
  15. IOPAMIDOL [Concomitant]
  16. DUONEB [Concomitant]
  17. MAGNESIUM SULFATE [Concomitant]
  18. MICAFUNGIN [Concomitant]
  19. MIDAZOLAM DRIP [Concomitant]
  20. PHENYTOIN [Concomitant]
  21. PIP/TAZO [Concomitant]
  22. KCL [Concomitant]
  23. NEUTRAPHOS [Concomitant]
  24. PROPOFOL DRIP [Concomitant]
  25. SENNA [Concomitant]
  26. SODIUM CHLORIDE [Concomitant]
  27. TDAP [Concomitant]
  28. VANCOMYCIN [Concomitant]

REACTIONS (10)
  - Hyperthermia [None]
  - Product contamination [None]
  - Respiratory failure [None]
  - Haemophilus test positive [None]
  - Cardiac arrest [None]
  - Pulseless electrical activity [None]
  - Road traffic accident [None]
  - Unresponsive to stimuli [None]
  - Cervical vertebral fracture [None]
  - Clavicle fracture [None]
